FAERS Safety Report 17485583 (Version 2)
Quarter: 2020Q2

REPORT INFORMATION
  Report Type: Spontaneous
  Country: US (occurrence: US)
  Receive Date: 20200302
  Receipt Date: 20200407
  Transmission Date: 20200713
  Serious: No
  Sender: FDA-Public Use
  Company Number: US-SA-2020SA054092

PATIENT
  Age: 46 Year
  Sex: Male
  Weight: 90.7 kg

DRUGS (1)
  1. AUBAGIO [Suspect]
     Active Substance: TERIFLUNOMIDE
     Dosage: 14 MG, QD
     Route: 048
     Dates: start: 20181129

REACTIONS (2)
  - Product dose omission [Unknown]
  - Alopecia [Unknown]
